FAERS Safety Report 9728025 (Version 1)
Quarter: 2013Q4

REPORT INFORMATION
  Report Type: Spontaneous
  Country: US (occurrence: None)
  Receive Date: 20131203
  Receipt Date: 20131203
  Transmission Date: 20140711
  Serious: No
  Sender: FDA-Public Use
  Company Number: None

PATIENT
  Age: 31 Year
  Sex: Female

DRUGS (1)
  1. MIRVASO [Suspect]
     Indication: ROSACEA
     Dosage: APPLY TO FACE DAILY, ONCE DAILY, APPLIED TO A SURFACE, USUALLY THE SKIN
     Dates: start: 20131124, end: 20131201

REACTIONS (3)
  - Rosacea [None]
  - Condition aggravated [None]
  - Anxiety [None]
